FAERS Safety Report 17207324 (Version 1)
Quarter: 2019Q4

REPORT INFORMATION
  Report Type: Spontaneous
  Country: JP (occurrence: JP)
  Receive Date: 20191227
  Receipt Date: 20191227
  Transmission Date: 20200122
  Serious: Yes (Other)
  Sender: FDA-Public Use
  Company Number: NVSJ2019JP006103

PATIENT
  Age: 96 Year
  Sex: Female

DRUGS (1)
  1. EXELON PATCH [Suspect]
     Active Substance: RIVASTIGMINE
     Indication: PRODUCT USED FOR UNKNOWN INDICATION
     Dosage: UNK
     Route: 062

REACTIONS (6)
  - Clinical dementia rating scale score abnormal [Unknown]
  - Pruritus [Unknown]
  - Erythema [Unknown]
  - Arrhythmia [Unknown]
  - Myocardial infarction [Unknown]
  - Application site dermatitis [Unknown]
